FAERS Safety Report 12643988 (Version 1)
Quarter: 2016Q3

REPORT INFORMATION
  Report Type: Spontaneous
  Country: CH (occurrence: CH)
  Receive Date: 20160811
  Receipt Date: 20160811
  Transmission Date: 20161109
  Serious: Yes (Hospitalization)
  Sender: FDA-Public Use
  Company Number: CH-PFIZER INC-2016375864

PATIENT
  Age: 54 Year
  Sex: Female

DRUGS (15)
  1. TAZOBAC [Suspect]
     Active Substance: PIPERACILLIN SODIUM\TAZOBACTAM SODIUM
     Indication: RESPIRATORY TRACT INFECTION
     Dosage: UNK
  2. ALDACTONE [Suspect]
     Active Substance: SPIRONOLACTONE
     Dosage: UNK
  3. CERTICAN [Suspect]
     Active Substance: EVEROLIMUS
     Indication: IMMUNOSUPPRESSION
     Dosage: UNK
  4. ESOMEP /01479302/ [Suspect]
     Active Substance: ESOMEPRAZOLE MAGNESIUM
     Dosage: UNK
  5. INSULIN [Concomitant]
     Active Substance: INSULIN NOS
     Dosage: UNK
  6. FOSAMAX [Concomitant]
     Active Substance: ALENDRONATE SODIUM
     Dosage: UNK
  7. CALCIMAGON D3 [Concomitant]
     Active Substance: CALCIUM\CHOLECALCIFEROL
     Dosage: UNK
  8. NORMACOL [Concomitant]
     Active Substance: KARAYA GUM
     Dosage: UNK
  9. SANDIMMUN NEORAL [Suspect]
     Active Substance: CYCLOSPORINE
     Indication: IMMUNOSUPPRESSION
     Dosage: UNK
  10. IMUREK /00001501/ [Suspect]
     Active Substance: AZATHIOPRINE
     Dosage: UNK
  11. TOREM /01036501/ [Suspect]
     Active Substance: TORSEMIDE
     Dosage: UNK
  12. PREDNISON STREULI [Concomitant]
     Dosage: UNK
  13. MARCOUMAR [Concomitant]
     Active Substance: PHENPROCOUMON
     Dosage: UNK
  14. FLATULEX /06269601/ [Concomitant]
     Dosage: UNK
  15. KCL HAUSMANN [Concomitant]
     Dosage: UNK

REACTIONS (2)
  - Pancytopenia [Unknown]
  - Febrile infection [Recovered/Resolved]

NARRATIVE: CASE EVENT DATE: 201607
